FAERS Safety Report 7465976-7 (Version None)
Quarter: 2011Q2

REPORT INFORMATION
  Report Type: 
  Country: None (occurrence: None)
  Receive Date: 20110509
  Receipt Date: 20100524
  Transmission Date: 20111010
  Serious: No
  Sender: FDA-Public Use
  Company Number: US-ALEXION-A201000601

PATIENT
  Sex: Male

DRUGS (8)
  1. FOLIC ACID [Concomitant]
     Dosage: 1 MG, QD
     Route: 048
  2. TYLENOL (CAPLET) [Concomitant]
     Dosage: UNK
     Route: 048
  3. BENADRYL [Concomitant]
     Dosage: 50 MG, PRIOR TO INFUSION
     Dates: start: 20100524
  4. SOLIRIS [Suspect]
     Dosage: 900 MG, Q2W
     Route: 042
     Dates: start: 20100511
  5. BENADRYL [Concomitant]
     Dosage: 25 MG, PRE-INFUSION
     Dates: start: 20100412, end: 20100511
  6. SOLIRIS [Suspect]
     Indication: PAROXYSMAL NOCTURNAL HAEMOGLOBINURIA
     Dosage: 600 MG, QW
     Route: 042
     Dates: start: 20100412, end: 20100503
  7. COUMADIN [Concomitant]
     Dosage: 5 MG, QD
     Route: 048
  8. GABAPENTIN [Concomitant]
     Dosage: 800 MG, BID
     Route: 048

REACTIONS (2)
  - PRURITUS [None]
  - HEADACHE [None]
